FAERS Safety Report 5233590-X (Version None)
Quarter: 2007Q1

REPORT INFORMATION
  Report Type: 
  Country: None (occurrence: None)
  Receive Date: 20070208
  Receipt Date: 20070126
  Transmission Date: 20070707
  Serious: Yes (Disabling)
  Sender: FDA-Public Use
  Company Number: GBWYE392229JAN07

PATIENT
  Age: 43 Year
  Sex: Male
  Weight: 90 kg

DRUGS (6)
  1. ENBREL [Suspect]
     Indication: PSORIASIS
     Dosage: 25MG, FREQUENCY UNKNOWN
     Route: 058
     Dates: start: 20061101, end: 20070110
  2. ENBREL [Suspect]
     Indication: PSORIATIC ARTHROPATHY
  3. SALBUTAMOL [Concomitant]
     Indication: ASTHMA
     Dosage: UNKNOWN
     Route: 055
  4. OMEPRAZOLE [Concomitant]
     Indication: DYSPEPSIA
     Dosage: 20MG, FREQUENCY UNKNOWN
     Route: 048
  5. HYDROXYUREA [Concomitant]
     Indication: PSORIASIS
     Route: 048
     Dates: start: 20060315, end: 20061020
  6. METHOTREXATE [Concomitant]
     Indication: PSORIASIS
     Dosage: 15MG, FREQUENCY UNKNOWN
     Route: 048
     Dates: start: 20061020, end: 20061027

REACTIONS (9)
  - ASTHMA [None]
  - BACK PAIN [None]
  - CONDITION AGGRAVATED [None]
  - GASTROINTESTINAL HAEMORRHAGE [None]
  - HEADACHE [None]
  - NAUSEA [None]
  - RHINITIS [None]
  - VERTIGO [None]
  - VOMITING [None]
